FAERS Safety Report 5295345-X (Version None)
Quarter: 2007Q2

REPORT INFORMATION
  Report Type: 
  Country: None (occurrence: None)
  Receive Date: 20070412
  Receipt Date: 20070329
  Transmission Date: 20071010
  Serious: Yes (Hospitalization)
  Sender: FDA-Public Use
  Company Number: US-AMGEN-STX202037

PATIENT
  Sex: Female

DRUGS (2)
  1. ENBREL [Suspect]
     Indication: PSORIATIC ARTHROPATHY
     Route: 058
     Dates: start: 20021101
  2. ENBREL [Suspect]
     Indication: PSORIASIS

REACTIONS (4)
  - HYSTERECTOMY [None]
  - INJECTION SITE IRRITATION [None]
  - INJECTION SITE PAIN [None]
  - PSORIASIS [None]
